FAERS Safety Report 5305578-1 (Version None)
Quarter: 2007Q2

REPORT INFORMATION
  Report Type: 
  Country: None (occurrence: None)
  Receive Date: 20070416
  Receipt Date: 20070330
  Transmission Date: 20071010
  Serious: Yes (Hospitalization, Other)
  Sender: FDA-Public Use
  Company Number: MEDI-0005605

PATIENT
  Age: 5 Month
  Sex: Female

DRUGS (5)
  1. SYNAGIS [Suspect]
     Dates: start: 20061201, end: 20070323
  2. SYNAGIS [Suspect]
     Dates: start: 20061201
  3. SYNAGIS [Suspect]
     Dates: start: 20061229
  4. SYNAGIS [Suspect]
     Dates: start: 20070126
  5. SYNAGIS [Suspect]
     Dates: start: 20070223

REACTIONS (3)
  - DRUG INEFFECTIVE [None]
  - PERTUSSIS [None]
  - RESPIRATORY SYNCYTIAL VIRUS INFECTION [None]
